FAERS Safety Report 9516609 (Version 2)
Quarter: 2013Q4

REPORT INFORMATION
  Report Type: Spontaneous
  Country: US (occurrence: US)
  Receive Date: 20130911
  Receipt Date: 20131106
  Transmission Date: 20140711
  Serious: Yes (Other)
  Sender: FDA-Public Use
  Company Number: US-GLAXOSMITHKLINE-A1040869A

PATIENT
  Age: 83 Year
  Sex: Male

DRUGS (2)
  1. ADVAIR [Suspect]
     Indication: CHRONIC OBSTRUCTIVE PULMONARY DISEASE
     Dosage: 1PUFF TWICE PER DAY
     Route: 055
     Dates: start: 20130905, end: 20130907
  2. NO CONCURRENT MEDICATION [Concomitant]

REACTIONS (3)
  - Diverticulitis [Recovering/Resolving]
  - Back pain [Recovering/Resolving]
  - Myalgia [Recovering/Resolving]
